FAERS Safety Report 13747394 (Version 1)
Quarter: 2017Q3

REPORT INFORMATION
  Report Type: Spontaneous
  Country: JP (occurrence: JP)
  Receive Date: 20170712
  Receipt Date: 20170712
  Transmission Date: 20171127
  Serious: Yes (Death, Hospitalization)
  Sender: FDA-Public Use
  Company Number: JP-PFIZER INC-2017296285

PATIENT
  Age: 65 Year
  Sex: Male
  Weight: 61.8 kg

DRUGS (6)
  1. AMPICILLIN [Suspect]
     Active Substance: AMPICILLIN
     Indication: PNEUMONIA PNEUMOCOCCAL
     Dosage: 2 G, UNK
  2. IRINOTECAN HCL [Concomitant]
     Active Substance: IRINOTECAN HYDROCHLORIDE
     Indication: SMALL CELL LUNG CANCER
     Dosage: UNK
  3. ETOPOSIDE. [Concomitant]
     Active Substance: ETOPOSIDE
     Indication: SMALL CELL LUNG CANCER
     Dosage: UNK
  4. MEROPENEM. [Suspect]
     Active Substance: MEROPENEM
     Indication: PNEUMONIA PNEUMOCOCCAL
     Dosage: 3 G, DAILY (DAY 2)
  5. CISPLATIN. [Concomitant]
     Active Substance: CISPLATIN
     Indication: SMALL CELL LUNG CANCER
     Dosage: UNK
  6. AMRUBICIN [Concomitant]
     Active Substance: AMRUBICIN
     Indication: SMALL CELL LUNG CANCER
     Dosage: UNK

REACTIONS (3)
  - Drug ineffective [Fatal]
  - Acute kidney injury [Fatal]
  - Septic shock [Fatal]
